FAERS Safety Report 13418041 (Version 1)
Quarter: 2017Q2

REPORT INFORMATION
  Report Type: Spontaneous
  Country: US (occurrence: US)
  Receive Date: 20170407
  Receipt Date: 20170407
  Transmission Date: 20170830
  Serious: Yes (Death, Hospitalization)
  Sender: FDA-Public Use
  Company Number: US-IMPAX LABORATORIES, INC-2017-IPXL-00840

PATIENT
  Age: 76 Year
  Sex: Female

DRUGS (1)
  1. DIGOXIN. [Suspect]
     Active Substance: DIGOXIN
     Indication: PRODUCT USED FOR UNKNOWN INDICATION
     Dosage: UNK
     Route: 065

REACTIONS (13)
  - Toxicity to various agents [Fatal]
  - Diarrhoea [Unknown]
  - Hyperkalaemia [Unknown]
  - Bradycardia [Fatal]
  - Bundle branch block right [Recovered/Resolved]
  - Cardiac arrest [Fatal]
  - Somnolence [Unknown]
  - Abdominal pain [Unknown]
  - Lethargy [Unknown]
  - Hypotension [Unknown]
  - Rales [Unknown]
  - Electrocardiogram ST-T segment depression [Recovering/Resolving]
  - Skin discolouration [Unknown]
